FAERS Safety Report 5006402-7 (Version None)
Quarter: 2006Q2

REPORT INFORMATION
  Report Type: 
  Country: None (occurrence: None)
  Receive Date: 20060519
  Receipt Date: 20060426
  Transmission Date: 20061013
  Serious: Yes (Life-Threatening, Hospitalization)
  Sender: FDA-Public Use
  Company Number: JP-SANOFI-SYNTHELABO-A01200603266

PATIENT
  Age: 78 Year
  Sex: Female

DRUGS (3)
  1. MYSLEE [Suspect]
     Indication: INSOMNIA
     Dosage: 5 MG
     Route: 048
     Dates: start: 20060421, end: 20060421
  2. HALCION [Concomitant]
     Indication: INSOMNIA
     Dosage: UNK
     Route: 048
  3. NITOROL R [Concomitant]
     Indication: DRUG USE FOR UNKNOWN INDICATION
     Dosage: UNK
     Route: 048

REACTIONS (9)
  - ANOXIC ENCEPHALOPATHY [None]
  - ATELECTASIS [None]
  - BLOOD PH DECREASED [None]
  - BLOOD PRESSURE FLUCTUATION [None]
  - BLOOD PRESSURE INCREASED [None]
  - CARDIAC HYPERTROPHY [None]
  - CARDIO-RESPIRATORY ARREST [None]
  - FEELING HOT [None]
  - SPUTUM DISCOLOURED [None]
